FAERS Safety Report 5905473-0 (Version None)
Quarter: 2008Q4

REPORT INFORMATION
  Report Type: 
  Country: None (occurrence: None)
  Receive Date: 20081002
  Receipt Date: 20080926
  Transmission Date: 20090506
  Serious: Yes (Death)
  Sender: FDA-Public Use
  Company Number: JP-BAYER-200812156BYL

PATIENT
  Age: 75 Year
  Sex: Female

DRUGS (5)
  1. AVELOX [Suspect]
     Indication: PNEUMONIA
     Dosage: TOTAL DAILY DOSE: 400 MG  UNIT DOSE: 400 MG
     Route: 048
     Dates: start: 20080910, end: 20080910
  2. COTRIM [Suspect]
     Indication: PNEUMONIA
     Dosage: UNIT DOSE: 400 MG
     Route: 048
     Dates: start: 20080910, end: 20080910
  3. SOLU-MEDROL [Suspect]
     Indication: PNEUMONIA
     Dosage: TOTAL DAILY DOSE: 1 G  UNIT DOSE: 1 G
     Route: 042
     Dates: start: 20080910, end: 20080911
  4. KN-3B [Concomitant]
     Indication: DRUG USE FOR UNKNOWN INDICATION
     Dosage: TOTAL DAILY DOSE: 500 ML  UNIT DOSE: 500 ML
     Route: 041
     Dates: start: 20080910, end: 20080911
  5. OMEPRAZOLE [Concomitant]
     Indication: DRUG USE FOR UNKNOWN INDICATION
     Dosage: TOTAL DAILY DOSE: 20 MG  UNIT DOSE: 20 MG
     Route: 041
     Dates: start: 20080910, end: 20080911

REACTIONS (2)
  - ELECTROCARDIOGRAM QT PROLONGED [None]
  - INTERSTITIAL LUNG DISEASE [None]
